FAERS Safety Report 10057925 (Version 1)
Quarter: 2014Q2

REPORT INFORMATION
  Report Type: Spontaneous
  Country: US (occurrence: None)
  Receive Date: 20140403
  Receipt Date: 20140403
  Transmission Date: 20141212
  Serious: No
  Sender: FDA-Public Use
  Company Number: None

PATIENT
  Age: 70 Year
  Sex: Female
  Weight: 108.86 kg

DRUGS (2)
  1. IBANDRONATE SODIUM [Suspect]
     Indication: OSTEOPOROSIS
     Dosage: 1 PILL, TAKEN BY MOUTH
     Route: 048
     Dates: start: 20140303, end: 20140303
  2. OCUVITE [Concomitant]

REACTIONS (9)
  - Back pain [None]
  - Diarrhoea [None]
  - Body temperature increased [None]
  - Movement disorder [None]
  - Feeling abnormal [None]
  - Muscle disorder [None]
  - Arthropathy [None]
  - Bone disorder [None]
  - Arthralgia [None]
